FAERS Safety Report 13936249 (Version 4)
Quarter: 2017Q4

REPORT INFORMATION
  Report Type: Report from Study
  Country: CA (occurrence: CA)
  Receive Date: 20170905
  Receipt Date: 20171101
  Transmission Date: 20180320
  Serious: Yes (Other)
  Sender: FDA-Public Use
  Company Number: CA-GLAXOSMITHKLINE-CA2017GSK106437

PATIENT
  Age: 64 Year
  Sex: Male

DRUGS (4)
  1. MEPOLIZUMAB [Suspect]
     Active Substance: MEPOLIZUMAB
     Dosage: 100 MG, Z MONTHLY
     Route: 042
  2. VENTOLIN [Suspect]
     Active Substance: ALBUTEROL SULFATE
     Indication: PRODUCT USED FOR UNKNOWN INDICATION
     Dosage: UNK
  3. MEPOLIZUMAB [Suspect]
     Active Substance: MEPOLIZUMAB
     Indication: ASTHMA
     Dosage: 100 MG, Z MONTHLY
     Route: 042
     Dates: start: 20170706
  4. MEPOLIZUMAB [Suspect]
     Active Substance: MEPOLIZUMAB
     Dosage: 100 MG, Z MONTHLY
     Route: 042
     Dates: start: 20170831

REACTIONS (13)
  - Blood pressure increased [Unknown]
  - Headache [Unknown]
  - Cough [Unknown]
  - Productive cough [Recovered/Resolved]
  - Sinusitis [Recovered/Resolved]
  - Sputum discoloured [Recovered/Resolved]
  - Infection [Unknown]
  - Sinus congestion [Unknown]
  - Musculoskeletal stiffness [Unknown]
  - Wheezing [Unknown]
  - Asthma [Unknown]
  - Lower respiratory tract infection [Recovered/Resolved]
  - Upper respiratory tract congestion [Unknown]

NARRATIVE: CASE EVENT DATE: 20170706
